FAERS Safety Report 4506350-2 (Version None)
Quarter: 2004Q4

REPORT INFORMATION
  Report Type: 
  Country: None (occurrence: None)
  Receive Date: 20041025
  Receipt Date: 20031105
  Transmission Date: 20050328
  Serious: Yes (Other)
  Sender: FDA-Public Use
  Company Number: US-JNJFOC-20031101033

PATIENT
  Age: 42 Year
  Sex: Female
  Weight: 89.8122 kg

DRUGS (3)
  1. REMICADE [Suspect]
     Indication: CROHN'S DISEASE
     Dosage: 500 MG, INTRAVENOUS
     Route: 042
     Dates: start: 20031104
  2. AZATHIOPRINE [Suspect]
     Indication: DRUG USE FOR UNKNOWN INDICATION
     Dates: start: 20030927, end: 20031103
  3. ASACOL [Concomitant]

REACTIONS (2)
  - PANCREATITIS [None]
  - THERAPEUTIC RESPONSE DECREASED [None]
